FAERS Safety Report 4341083-7 (Version None)
Quarter: 2004Q2

REPORT INFORMATION
  Report Type: 
  Country: None (occurrence: None)
  Receive Date: 20040419
  Receipt Date: 20040407
  Transmission Date: 20050107
  Serious: Yes (Other)
  Sender: FDA-Public Use
  Company Number: JP-ROCHE-363881

PATIENT
  Age: 64 Year
  Sex: Male

DRUGS (6)
  1. NICARDIPINE HCL [Suspect]
     Indication: DRUG USE FOR UNKNOWN INDICATION
     Dosage: DOSING REPORTED AS 75 ML CONTINUOUS.
     Route: 041
     Dates: start: 20040322
  2. FAMOTIDINE [Suspect]
     Indication: DRUG USE FOR UNKNOWN INDICATION
     Dosage: DOSING DESCRIBED AS CONTINUOUS.
     Route: 041
     Dates: start: 20040322
  3. PHENYTOIN [Concomitant]
  4. SOLDEM [Concomitant]
  5. FRUCTOSE/GLYCERIN [Concomitant]
  6. AMLODIPINE BESYLATE [Concomitant]

REACTIONS (1)
  - RENAL IMPAIRMENT [None]
